FAERS Safety Report 8455795-7 (Version None)
Quarter: 2012Q2

REPORT INFORMATION
  Report Type: 
  Country: None (occurrence: None)
  Receive Date: 20120323
  Receipt Date: 20110915
  Transmission Date: 20120825
  Serious: Yes (Other)
  Sender: FDA-Public Use
  Company Number: 163-21880-11092229

PATIENT
  Age: 66 Year
  Sex: Female

DRUGS (6)
  1. ASPIRIN [Concomitant]
  2. REVLIMID [Suspect]
     Indication: MULTIPLE MYELOMA
     Dosage: 10 MG, DAILY X 21/28 DAYS, PO : 25 MG, DAILY X 21/28 DAYS, PO
     Route: 048
     Dates: start: 20110401, end: 20110101
  3. REVLIMID [Suspect]
     Indication: MULTIPLE MYELOMA
     Dosage: 10 MG, DAILY X 21/28 DAYS, PO : 25 MG, DAILY X 21/28 DAYS, PO
     Route: 048
     Dates: start: 20110101, end: 20110901
  4. DEXAMETHASONE [Concomitant]
  5. LABETALOL HCL [Concomitant]
  6. PREGABALIN [Concomitant]

REACTIONS (1)
  - FULL BLOOD COUNT DECREASED [None]
